FAERS Safety Report 26216479 (Version 1)
Quarter: 2025Q4

REPORT INFORMATION
  Report Type: Spontaneous
  Country: IN (occurrence: None)
  Receive Date: 20251231
  Receipt Date: 20251231
  Transmission Date: 20260117
  Serious: Yes (Other)
  Sender: NATCO PHARMA
  Company Number: IN-NATCOUSA-2025-NATCOUSA-000362

PATIENT
  Age: 61 Year
  Sex: Male

DRUGS (4)
  1. AZACITIDINE [Suspect]
     Active Substance: AZACITIDINE
     Indication: Acute myeloid leukaemia
     Dosage: FOR THE FIRST 5 DAYS
  2. VENETOCLAX [Concomitant]
     Active Substance: VENETOCLAX
     Indication: Acute myeloid leukaemia
     Dosage: FOR SEVEN CONSECUTIVE DAYS EVERY 28 DAYS
  3. AZACITIDINE [Suspect]
     Active Substance: AZACITIDINE
     Indication: Acute myeloid leukaemia
     Dosage: REDUCED TO FIVE DAYS PER CYCLE
  4. AZACITIDINE [Suspect]
     Active Substance: AZACITIDINE
     Indication: Acute myeloid leukaemia
     Dosage: FOR THE REMAINING 2 DAYS

REACTIONS (2)
  - Seronegative arthritis [Recovered/Resolved]
  - Product use in unapproved indication [Unknown]
